FAERS Safety Report 21163328 (Version 2)
Quarter: 2022Q3

REPORT INFORMATION
  Report Type: Spontaneous
  Country: US (occurrence: US)
  Receive Date: 20220802
  Receipt Date: 20220804
  Transmission Date: 20221026
  Serious: No
  Sender: FDA-Public Use
  Company Number: US-IDORSIA-000807-2022-US

PATIENT
  Sex: Male

DRUGS (1)
  1. QUVIVIQ [Suspect]
     Active Substance: DARIDOREXANT
     Indication: Product used for unknown indication
     Dosage: UNK, QD
     Route: 048

REACTIONS (2)
  - Agitation [Unknown]
  - Drug ineffective [Unknown]
